FAERS Safety Report 7828898-5 (Version None)
Quarter: 2011Q4

REPORT INFORMATION
  Report Type: 
  Country: None (occurrence: None)
  Receive Date: 20111020
  Receipt Date: 20100326
  Transmission Date: 20120403
  Serious: No
  Sender: FDA-Public Use
  Company Number: US-BAYER-201017977NA

PATIENT
  Sex: Female

DRUGS (2)
  1. YAZ [Concomitant]
     Indication: CONTRACEPTION
  2. CIPROFLOXACIN [Suspect]
     Indication: PRODUCT USED FOR UNKNOWN INDICATION
     Dosage: UNK
     Dates: start: 20100316

REACTIONS (1)
  - DIARRHOEA [None]
